FAERS Safety Report 9725021 (Version 2)
Quarter: 2013Q4

REPORT INFORMATION
  Report Type: Spontaneous
  Country: FR (occurrence: FR)
  Receive Date: 20131203
  Receipt Date: 20131203
  Transmission Date: 20140711
  Serious: Yes (Hospitalization)
  Sender: FDA-Public Use
  Company Number: FR-ROCHE-1207451

PATIENT
  Sex: Male

DRUGS (7)
  1. CELLCEPT [Suspect]
     Indication: PRODUCT USED FOR UNKNOWN INDICATION
     Route: 048
     Dates: end: 20130303
  2. ROVALCYTE [Concomitant]
     Dosage: RESTARTED
     Route: 048
     Dates: start: 201211, end: 20130303
  3. ROVALCYTE [Concomitant]
     Route: 048
     Dates: start: 20130305
  4. NEORAL [Concomitant]
     Route: 048
     Dates: start: 201211
  5. INEXIUM [Concomitant]
     Route: 048
     Dates: start: 201211
  6. CORTANCYL [Concomitant]
     Route: 048
     Dates: start: 201211
  7. MAGNE B6 (FRANCE) [Concomitant]
     Route: 048

REACTIONS (2)
  - Lung disorder [Recovered/Resolved]
  - Agranulocytosis [Recovered/Resolved]
